FAERS Safety Report 6182666-1 (Version None)
Quarter: 2009Q2

REPORT INFORMATION
  Report Type: 
  Country: None (occurrence: None)
  Receive Date: 20090507
  Receipt Date: 20090429
  Transmission Date: 20091009
  Serious: Yes (Disabling)
  Sender: FDA-Public Use
  Company Number: A0781538A

PATIENT
  Sex: Female

DRUGS (1)
  1. TREXIMET [Suspect]
     Indication: MIGRAINE
     Dosage: 85MG UNKNOWN
     Route: 048
     Dates: start: 20090401

REACTIONS (4)
  - BLOOD PRESSURE INCREASED [None]
  - DREAMY STATE [None]
  - HEART RATE DECREASED [None]
  - SOMNOLENCE [None]
